FAERS Safety Report 8495728-0 (Version None)
Quarter: 2012Q3

REPORT INFORMATION
  Report Type: 
  Country: None (occurrence: None)
  Receive Date: 20120709
  Receipt Date: 20120706
  Transmission Date: 20120928
  Serious: Yes (Death, Hospitalization)
  Sender: FDA-Public Use
  Company Number: JP-ABBOTT-12P-087-0949597-00

PATIENT
  Sex: Male

DRUGS (5)
  1. DIABETES DRUG [Concomitant]
     Indication: PRODUCT USED FOR UNKNOWN INDICATION
  2. HUMIRA [Suspect]
     Dates: start: 20120525, end: 20120525
  3. ANTIHYPERTENSIVES [Concomitant]
     Indication: PRODUCT USED FOR UNKNOWN INDICATION
  4. HUMIRA [Suspect]
     Indication: PSORIASIS
     Route: 058
     Dates: start: 20110330, end: 20110330
  5. HUMIRA [Suspect]
     Dates: end: 20120516

REACTIONS (2)
  - MULTI-ORGAN FAILURE [None]
  - PYREXIA [None]
